FAERS Safety Report 7947186-X (Version None)
Quarter: 2011Q4

REPORT INFORMATION
  Report Type: 
  Country: None (occurrence: None)
  Receive Date: 20111129
  Receipt Date: 20111121
  Transmission Date: 20120403
  Serious: Yes (Life-Threatening, Other)
  Sender: FDA-Public Use
  Company Number: TW-AMGEN-TWNSP2011061516

PATIENT
  Age: 41 Year
  Sex: Female

DRUGS (1)
  1. GRAN [Suspect]
     Dosage: 10 MUG/KG, QD

REACTIONS (1)
  - ANAPHYLACTOID REACTION [None]
